FAERS Safety Report 24277546 (Version 1)
Quarter: 2024Q3

REPORT INFORMATION
  Report Type: Spontaneous
  Country: MY (occurrence: MY)
  Receive Date: 20240903
  Receipt Date: 20240903
  Transmission Date: 20241017
  Serious: Yes (Life-Threatening, Hospitalization)
  Sender: MYLAN
  Company Number: MY-MYLANLABS-2024M1080700

PATIENT
  Age: 67 Year
  Sex: Male

DRUGS (4)
  1. CISPLATIN [Suspect]
     Active Substance: CISPLATIN
     Indication: Pancreatic carcinoma
     Dosage: UNK UNK, CYCLE, RECEIVED 4 CYCLES
     Route: 065
  2. GEMCITABINE [Suspect]
     Active Substance: GEMCITABINE
     Indication: Pancreatic carcinoma
     Dosage: UNK UNK, CYCLE, RECEIVED 4 CYCLES
     Route: 065
  3. PIPERACILLIN SODIUM\TAZOBACTAM SODIUM [Suspect]
     Active Substance: PIPERACILLIN SODIUM\TAZOBACTAM SODIUM
     Indication: Antibiotic therapy
     Dosage: UNK
     Route: 042
  4. ATROPINE [Suspect]
     Active Substance: ATROPINE
     Indication: Bradycardia
     Dosage: UNK
     Route: 042

REACTIONS (10)
  - Vibrio vulnificus infection [Recovering/Resolving]
  - Loss of consciousness [Recovering/Resolving]
  - Bradycardia [Recovering/Resolving]
  - Hypotension [Recovering/Resolving]
  - Septic shock [Recovering/Resolving]
  - Bacterial sepsis [Recovering/Resolving]
  - Drug ineffective [Unknown]
  - Ventricular tachycardia [Recovered/Resolved]
  - Acute kidney injury [Recovering/Resolving]
  - Hypertransaminasaemia [Recovering/Resolving]
